FAERS Safety Report 9964857 (Version 1)
Quarter: 2014Q1

REPORT INFORMATION
  Report Type: Spontaneous
  Country: US (occurrence: US)
  Receive Date: 20140305
  Receipt Date: 20140305
  Transmission Date: 20141002
  Serious: No
  Sender: FDA-Public Use
  Company Number: US-AMGEN-USASP2014005676

PATIENT
  Age: 53 Year
  Sex: Female

DRUGS (17)
  1. ENBREL [Suspect]
     Indication: RHEUMATOID ARTHRITIS
     Dosage: 50 MG, QWK
     Route: 058
     Dates: start: 201401
  2. ALENDRONATE SODIUM [Concomitant]
     Dosage: UNK
  3. CALCIUM [Concomitant]
     Dosage: UNK
  4. CRANBERRY                          /01512301/ [Concomitant]
     Dosage: UNK
  5. FISH OIL [Concomitant]
     Dosage: UNK
  6. FOLIC ACID [Concomitant]
     Dosage: UNK
  7. GLUCOSAMINE SULFATE [Concomitant]
     Dosage: UNK
  8. HYDROCHLOROTHIAZIDE [Concomitant]
     Dosage: UNK
  9. LYRICA [Concomitant]
     Dosage: UNK
  10. MELOXICAM [Concomitant]
     Dosage: UNK
  11. KLOR CON [Concomitant]
     Dosage: UNK
  12. PREDNISONE [Concomitant]
     Dosage: UNK
  13. PRILOSEC                           /00661201/ [Concomitant]
     Dosage: UNK
  14. PROBIOTICS [Concomitant]
     Dosage: UNK
  15. TRAMADOL [Concomitant]
     Dosage: UNK
  16. VITAMIN B COMPLEX [Concomitant]
     Dosage: UNK
  17. VITAMIN D                          /00107901/ [Concomitant]
     Dosage: UNK

REACTIONS (1)
  - Contusion [Unknown]
